FAERS Safety Report 23936093 (Version 1)
Quarter: 2024Q2

REPORT INFORMATION
  Report Type: Spontaneous
  Country: PT (occurrence: PT)
  Receive Date: 20240604
  Receipt Date: 20240604
  Transmission Date: 20240715
  Serious: Yes (Other)
  Sender: FDA-Public Use
  Company Number: PT-SUN PHARMACEUTICAL INDUSTRIES LTD-2024R1-449302

PATIENT
  Sex: Female
  Weight: 50 kg

DRUGS (2)
  1. SULFASALAZINE [Suspect]
     Active Substance: SULFASALAZINE
     Indication: Colitis ulcerative
     Dosage: UNK
     Route: 065
  2. PRILOCAINE [Suspect]
     Active Substance: PRILOCAINE
     Indication: Spinal anaesthesia
     Dosage: 60 MG
     Route: 065

REACTIONS (1)
  - Methaemoglobinaemia [Recovered/Resolved]
